FAERS Safety Report 17096913 (Version 3)
Quarter: 2020Q3

REPORT INFORMATION
  Report Type: Spontaneous
  Country: US (occurrence: US)
  Receive Date: 20191202
  Receipt Date: 20200709
  Transmission Date: 20201102
  Serious: Yes (Other)
  Sender: FDA-Public Use
  Company Number: US-TEVA-2019-US-1144340

PATIENT
  Sex: Female

DRUGS (12)
  1. CYTALOPRAM [Concomitant]
  2. VITAMIN D3 [Concomitant]
     Active Substance: CHOLECALCIFEROL
  3. ACETAMINOPHEN. [Concomitant]
     Active Substance: ACETAMINOPHEN
  4. METOPROLOL. [Concomitant]
     Active Substance: METOPROLOL
  5. CLONAZEPAM (SOLCO) [Concomitant]
  6. SIMVASTATIN. [Concomitant]
     Active Substance: SIMVASTATIN
  7. HEALTHY JOINTS [Concomitant]
     Active Substance: UNSPECIFIED INGREDIENT
  8. BUSPAR [Concomitant]
     Active Substance: BUSPIRONE HYDROCHLORIDE
     Dosage: TAKING 1?3 TABLETS THREE TIMES A DAY AND HAD GOTTEN DOWN TO ONLY TAKING HALF A TABLET
  9. CLONAZEPAM?TEVA [Suspect]
     Active Substance: CLONAZEPAM
     Indication: ANXIETY
  10. ZANTAC [Concomitant]
     Active Substance: RANITIDINE HYDROCHLORIDE
  11. QUETIAPINE. [Concomitant]
     Active Substance: QUETIAPINE
  12. CLONAZEPAM?TEVA [Suspect]
     Active Substance: CLONAZEPAM
     Indication: NERVOUSNESS
     Dosage: DOSE STRENGTH:  1
     Route: 065

REACTIONS (13)
  - Feeling jittery [Unknown]
  - Vomiting [Unknown]
  - Tongue discomfort [Unknown]
  - Dysphagia [Unknown]
  - Arthritis [Unknown]
  - Anxiety [Unknown]
  - Walking aid user [Unknown]
  - Near death experience [Unknown]
  - Product substitution issue [Unknown]
  - Illness [Unknown]
  - Nausea [Unknown]
  - Dyspnoea [Unknown]
  - Tremor [Unknown]
